FAERS Safety Report 19064367 (Version 1)
Quarter: 2021Q1

REPORT INFORMATION
  Report Type: Spontaneous
  Country: US (occurrence: US)
  Receive Date: 20210326
  Receipt Date: 20210326
  Transmission Date: 20210420
  Serious: Yes (Other)
  Sender: FDA-Public Use
  Company Number: US-PFIZER INC-2021291611

PATIENT
  Age: 57 Year
  Sex: Female
  Weight: 83.91 kg

DRUGS (2)
  1. PREDNISONE. [Concomitant]
     Active Substance: PREDNISONE
     Indication: RHEUMATOID ARTHRITIS
     Dosage: 5 MG (5 MG: ONE TO TWO DAILY)
  2. XELJANZ [Suspect]
     Active Substance: TOFACITINIB CITRATE
     Indication: RHEUMATOID ARTHRITIS
     Dosage: 5 MG, 2X/DAY
     Route: 048
     Dates: start: 20200821

REACTIONS (3)
  - Retinal vein occlusion [Not Recovered/Not Resolved]
  - Thrombosis [Unknown]
  - Deep vein thrombosis [Unknown]
